FAERS Safety Report 9833516 (Version 31)
Quarter: 2017Q1

REPORT INFORMATION
  Report Type: Report from Study
  Country: CA (occurrence: CA)
  Receive Date: 20140122
  Receipt Date: 20170310
  Transmission Date: 20170429
  Serious: Yes (Hospitalization, Other)
  Sender: FDA-Public Use
  Company Number: CA-ROCHE-1288336

PATIENT
  Age: 73 Year
  Sex: Female
  Weight: 44 kg

DRUGS (8)
  1. ACTEMRA [Suspect]
     Active Substance: TOCILIZUMAB
     Route: 042
     Dates: start: 20140714
  2. FUROSEMIDE. [Concomitant]
     Active Substance: FUROSEMIDE
  3. DILTIAZEM. [Concomitant]
     Active Substance: DILTIAZEM
  4. ACTEMRA [Suspect]
     Active Substance: TOCILIZUMAB
     Route: 042
     Dates: start: 20150428
  5. PRADAXA [Concomitant]
     Active Substance: DABIGATRAN ETEXILATE MESYLATE
  6. ARAVA [Concomitant]
     Active Substance: LEFLUNOMIDE
  7. PANTOLOC [Concomitant]
     Active Substance: PANTOPRAZOLE SODIUM
  8. ACTEMRA [Suspect]
     Active Substance: TOCILIZUMAB
     Indication: RHEUMATOID ARTHRITIS
     Dosage: LAST DOSE OF TOCIIZUMAB: FEB/2014
     Route: 042
     Dates: start: 20130919

REACTIONS (34)
  - Peripheral arterial occlusive disease [Unknown]
  - Mass [Recovered/Resolved]
  - Skin fissures [Not Recovered/Not Resolved]
  - Insomnia [Unknown]
  - Fatigue [Unknown]
  - Arthralgia [Unknown]
  - Hypotension [Unknown]
  - Blood pressure increased [Unknown]
  - Impaired healing [Not Recovered/Not Resolved]
  - Onychoclasis [Unknown]
  - Eye pruritus [Recovering/Resolving]
  - Swelling face [Recovering/Resolving]
  - Ear pain [Recovered/Resolved]
  - Oxygen saturation decreased [Unknown]
  - Blood pressure increased [Unknown]
  - Lung disorder [Unknown]
  - Swelling face [Unknown]
  - Blood pressure systolic increased [Unknown]
  - Arrhythmia [Unknown]
  - Dizziness [Not Recovered/Not Resolved]
  - Ear disorder [Recovered/Resolved]
  - Skin depigmentation [Unknown]
  - Oxygen saturation decreased [Unknown]
  - Fall [Unknown]
  - Nasopharyngitis [Not Recovered/Not Resolved]
  - Hyperkeratosis [Unknown]
  - Limb injury [Unknown]
  - Gastroenteritis [Unknown]
  - Mass [Not Recovered/Not Resolved]
  - Lacrimation increased [Recovering/Resolving]
  - Eye irritation [Unknown]
  - Eye swelling [Recovering/Resolving]
  - Ocular hyperaemia [Recovered/Resolved]
  - Ear infection [Recovering/Resolving]

NARRATIVE: CASE EVENT DATE: 20130919
